FAERS Safety Report 5107794-0 (Version None)
Quarter: 2006Q3

REPORT INFORMATION
  Report Type: 
  Country: None (occurrence: None)
  Receive Date: 20060914
  Receipt Date: 20060905
  Transmission Date: 20061208
  Serious: No
  Sender: FDA-Public Use
  Company Number: GB-2006-013545

PATIENT
  Age: 33 Year
  Sex: Female
  Weight: 74 kg

DRUGS (2)
  1. MIRENA [Suspect]
     Indication: CONTRACEPTION
     Dosage: 20 UG/DAY, CONT, INTRA-UTERINE
     Route: 015
     Dates: start: 20050203, end: 20051103
  2. TYLEX (PHENYLEPHRINE HYDROCHLORIDE, CARBINOXAMINE MALEATE) [Concomitant]

REACTIONS (6)
  - ABSCESS [None]
  - BLOODY DISCHARGE [None]
  - BREAST DISCHARGE [None]
  - BREAST MASS [None]
  - FAT NECROSIS [None]
  - NIPPLE PAIN [None]
